FAERS Safety Report 4612056-1 (Version None)
Quarter: 2005Q2

REPORT INFORMATION
  Report Type: 
  Country: None (occurrence: None)
  Receive Date: 20050308
  Receipt Date: 20050103
  Transmission Date: 20051028
  Serious: Yes (Other)
  Sender: FDA-Public Use
  Company Number: 2005UW00075

PATIENT
  Age: 72 Year
  Sex: Female
  Weight: 88.45 kg

DRUGS (3)
  1. CRESTOR [Suspect]
     Indication: BLOOD CHOLESTEROL INCREASED
     Dosage: 10 MG PO
     Route: 048
     Dates: start: 20041201
  2. TOPROL-XL [Concomitant]
  3. PRINIVIL [Concomitant]

REACTIONS (4)
  - ALOPECIA [None]
  - CONSTIPATION [None]
  - DRY MOUTH [None]
  - POLLAKIURIA [None]
